FAERS Safety Report 9478856 (Version 1)
Quarter: 2013Q3

REPORT INFORMATION
  Report Type: Report from Study
  Country: US (occurrence: US)
  Receive Date: 20130827
  Receipt Date: 20130827
  Transmission Date: 20140515
  Serious: Yes (Hospitalization)
  Sender: FDA-Public Use
  Company Number: US-ROCHE-1265090

PATIENT
  Sex: Female

DRUGS (16)
  1. XOLAIR [Suspect]
     Indication: ASTHMA
     Dosage: DOSAGE INFOMATION UNKNOWN
     Route: 065
  2. LEVOXYL [Concomitant]
     Indication: PRODUCT USED FOR UNKNOWN INDICATION
     Dosage: NO DOSING INFORMATION REPORTED.
     Route: 065
  3. CLONIDINE [Concomitant]
     Dosage: NO OTHER DOSING INFORMATION REPORTED.
     Route: 065
  4. AMLODIPINE [Concomitant]
     Dosage: NO OTHER DOSING INFORMATION REPORTED
     Route: 065
  5. LOSARTAN [Concomitant]
     Dosage: NO OTHER DOSING INFORMATION REPORTED.
     Route: 065
  6. PROTONIX (UNITED STATES) [Concomitant]
     Dosage: NO OTHER DOSING INFORMATION GIVEN
     Route: 065
  7. MELOXICAM [Concomitant]
     Dosage: NO OTHER DOSING INFORMATION GIVEN
     Route: 065
  8. CETIRIZINE [Concomitant]
     Dosage: NO OTHER DOSING INFORMATION GIVEN
     Route: 065
  9. METFORMIN [Concomitant]
     Dosage: NO OTHER DOSING INFORMATION GIVEN
     Route: 065
  10. MAGNESIUM OXIDE [Concomitant]
     Route: 065
  11. SPIRIVA [Concomitant]
     Route: 065
  12. CYANOCOBALAMIN [Concomitant]
     Route: 065
  13. DULERA [Concomitant]
     Dosage: 200-5MCG PER ACTUATION
     Route: 065
  14. QVAR [Concomitant]
     Dosage: 80MCG PER ATUATION
     Route: 065
  15. ALBUTEROL [Concomitant]
  16. IPRATROPIUM [Concomitant]

REACTIONS (4)
  - Chest pain [Unknown]
  - Cough [Unknown]
  - Dyspnoea [Unknown]
  - Wheezing [Unknown]
